FAERS Safety Report 8738718 (Version 4)
Quarter: 2012Q4

REPORT INFORMATION
  Report Type: 
  Country: US (occurrence: US)
  Receive Date: 20120823
  Receipt Date: 20121214
  Transmission Date: 20130627
  Serious: Yes (Other)
  Sender: FDA-Public Use
  Company Number: US-PFIZER INC-2012202522

PATIENT
  Age: 39 Year
  Sex: Female
  Weight: 113 kg

DRUGS (11)
  1. NEURONTIN [Suspect]
     Indication: NEUROPATHY
     Dosage: 300 mg, 2x/day
     Dates: start: 2008, end: 20100911
  2. NEURONTIN [Suspect]
     Dosage: 100 mg, 2x/day
     Dates: start: 20120816
  3. TOPAMAX [Concomitant]
     Indication: SEIZURE
     Dosage: 125 mg, 2x/day
     Route: 048
  4. TOPAMAX [Concomitant]
     Indication: MIGRAINE
  5. VITAMIN A [Concomitant]
     Dosage: UNK
  6. VITAMIN C [Concomitant]
     Dosage: UNK
  7. VITAMIN D [Concomitant]
     Dosage: UNK
  8. VITAMIN E [Concomitant]
     Dosage: UNK
  9. TRAMADOL [Concomitant]
     Dosage: UNK
  10. TYLENOL [Concomitant]
     Dosage: UNK
  11. FLEXERIL [Concomitant]
     Dosage: UNK

REACTIONS (7)
  - Pituitary tumour [Unknown]
  - Autoimmune disorder [Unknown]
  - Haemolytic anaemia [Unknown]
  - Autoimmune thyroiditis [Unknown]
  - Coeliac disease [Unknown]
  - Sjogren^s syndrome [Unknown]
  - Fibromyalgia [Unknown]
